FAERS Safety Report 5684197-1 (Version None)
Quarter: 2008Q1

REPORT INFORMATION
  Report Type: 
  Country: None (occurrence: None)
  Receive Date: 20080327
  Receipt Date: 20080327
  Transmission Date: 20080703
  Serious: Yes (Other)
  Sender: FDA-Public Use
  Company Number: None

PATIENT
  Sex: Male
  Weight: 12.7007 kg

DRUGS (2)
  1. HUMATE-P [Suspect]
     Indication: SUBDURAL HAEMATOMA
     Dates: start: 20040615, end: 20040617
  2. HUMATE-P [Suspect]
     Indication: VON WILLEBRAND'S DISEASE
     Dates: start: 20040615, end: 20040617

REACTIONS (2)
  - HEPATITIS C ANTIBODY POSITIVE [None]
  - THERAPEUTIC PRODUCT CONTAMINATION [None]
